FAERS Safety Report 7505685-9 (Version None)
Quarter: 2011Q2

REPORT INFORMATION
  Report Type: 
  Country: None (occurrence: None)
  Receive Date: 20110526
  Receipt Date: 20110517
  Transmission Date: 20111010
  Serious: Yes (Other)
  Sender: FDA-Public Use
  Company Number: US-ASTRAZENECA-2011SE29843

PATIENT
  Age: 62 Year
  Sex: Female

DRUGS (4)
  1. GENERIC EFFEXOR [Concomitant]
  2. GENERIC WELBUTRIN [Concomitant]
  3. LAMICTAL [Concomitant]
  4. SEROQUEL [Suspect]
     Indication: BIPOLAR DISORDER
     Route: 048
     Dates: start: 20040101

REACTIONS (3)
  - FALL [None]
  - WRIST FRACTURE [None]
  - WRIST SURGERY [None]
